FAERS Safety Report 23698330 (Version 2)
Quarter: 2024Q2

REPORT INFORMATION
  Report Type: Spontaneous
  Country: CA (occurrence: CA)
  Receive Date: 20240402
  Receipt Date: 20240522
  Transmission Date: 20240716
  Serious: Yes (Death)
  Sender: FDA-Public Use
  Company Number: CA-HLS-202400828

PATIENT
  Sex: Male

DRUGS (52)
  1. CLOZAPINE [Suspect]
     Active Substance: CLOZAPINE
     Indication: Product used for unknown indication
     Dosage: 1 EVERY 1 DAYS?AMOUNT: 375 MILLIGRAM?TABLETS DOSAGE FORM
     Route: 065
  2. ARIPIPRAZOLE [Concomitant]
     Active Substance: ARIPIPRAZOLE
     Dosage: 1 EVERY 1 DAYS?AMOUNT: 2 MILLIGRAM?NOT SPECIFIED DOSAGE FORM?THERAPY DURATION: 169 DAYS
     Route: 048
  3. BETA CAROTENE [Concomitant]
     Active Substance: BETA CAROTENE
     Indication: Product used for unknown indication
     Dosage: AMOUNT: 100 MILLIGRAM?THERAPY DURATION: 127 DAYS
     Route: 048
  4. BETA CAROTENE [Concomitant]
     Active Substance: BETA CAROTENE
     Indication: Product used for unknown indication
     Dosage: AMOUNT: 112.5 MILLIGRAM?THERAPY DURATION: 335 DAYS
     Route: 048
  5. BETA CAROTENE [Concomitant]
     Active Substance: BETA CAROTENE
     Indication: Product used for unknown indication
     Dosage: 1 EVERY 1 DAYS?AMOUNT: 1 DOSAGE FORMS?THERAPY DURATION: 113 DAYS
     Route: 065
  6. BETA CAROTENE [Concomitant]
     Active Substance: BETA CAROTENE
     Indication: Product used for unknown indication
     Dosage: 1 EVERY 1 DAYS?AMOUNT: 300 MILLIGRAM?THERAPY DURATION: 109 DAYS
     Route: 065
  7. BETA CAROTENE [Concomitant]
     Active Substance: BETA CAROTENE
     Indication: Product used for unknown indication
     Dosage: 1 EVERY 1 DAYS?AMOUNT: 350 MILLIGRAM?THERAPY DURATION: 57 DAYS
     Route: 048
  8. BETA CAROTENE [Concomitant]
     Active Substance: BETA CAROTENE
     Indication: Product used for unknown indication
     Dosage: 1 EVERY 1 DAYS?AMOUNT: 375 MILLIGRAM
     Route: 048
  9. BETA CAROTENE [Concomitant]
     Active Substance: BETA CAROTENE
     Indication: Product used for unknown indication
     Dosage: 1 EVERY 1 DAYS?AMOUNT: 375 MILLIGRAM?TABLETS DOSAGE FORM
     Route: 065
  10. BETA CAROTENE [Concomitant]
     Active Substance: BETA CAROTENE
     Indication: Product used for unknown indication
     Dosage: 1 EVERY 1 DAYS?AMOUNT: 375 MILLIGRAM?THERAPY DURATION: 237 DAYS
     Route: 048
  11. BETA CAROTENE [Concomitant]
     Active Substance: BETA CAROTENE
     Indication: Product used for unknown indication
     Dosage: 1 EVERY 1 DAYS?AMOUNT: 375 MILLIGRAM?THERAPY DURATION: 249 DAYS
     Route: 048
  12. BETA CAROTENE [Concomitant]
     Active Substance: BETA CAROTENE
     Indication: Product used for unknown indication
     Dosage: 1 EVERY 1 DAYS?AMOUNT: 375 MILLIGRAM?THERAPY DURATION: 35 DAYS
     Route: 048
  13. BETA CAROTENE [Concomitant]
     Active Substance: BETA CAROTENE
     Indication: Product used for unknown indication
     Dosage: 1 EVERY 1 DAYS?AMOUNT: 375 MILLIGRAM?THERAPY DURATION: 440 DAYS
     Route: 048
  14. BETA CAROTENE [Concomitant]
     Active Substance: BETA CAROTENE
     Indication: Product used for unknown indication
     Dosage: 1 EVERY 1 DAYS?AMOUNT: 381.25 MILLIGRAM?THERAPY DURATION: 64 DAYS
     Route: 048
  15. BETA CAROTENE [Concomitant]
     Active Substance: BETA CAROTENE
     Indication: Product used for unknown indication
     Dosage: 1 EVERY 1 DAYS?AMOUNT: 387.5 MILLIGRAM?THERAPY DURATION: 140 DAYS
     Route: 048
  16. BETA CAROTENE [Concomitant]
     Active Substance: BETA CAROTENE
     Indication: Product used for unknown indication
     Dosage: 1 EVERY 1 DAYS?AMOUNT: 387.5 MILLIGRAM?THERAPY DURATION: 48 DAYS
     Route: 048
  17. BETA CAROTENE [Concomitant]
     Active Substance: BETA CAROTENE
     Indication: Product used for unknown indication
     Dosage: 1 EVERY 1 DAYS?AMOUNT: 400 MILLIGRAM?THERAPY DURATION: 121 DAYS
     Route: 048
  18. BETA CAROTENE [Concomitant]
     Active Substance: BETA CAROTENE
     Indication: Product used for unknown indication
     Dosage: 1 EVERY 1 DAYS?AMOUNT: 400 MILLIGRAM?THERAPY DURATION: 360 DAYS
     Route: 048
  19. BETA CAROTENE [Concomitant]
     Active Substance: BETA CAROTENE
     Indication: Product used for unknown indication
     Dosage: 1 EVERY 1 DAYS?AMOUNT: 400 MILLIGRAM?THERAPY DURATION: 767 DAYS
     Route: 048
  20. BETA CAROTENE [Concomitant]
     Active Substance: BETA CAROTENE
     Indication: Product used for unknown indication
     Dosage: 1 EVERY 1 DAYS?AMOUNT: 450 MILLIGRAM?THERAPY DURATION: 120 DAYS
     Route: 048
  21. BETA CAROTENE [Concomitant]
     Active Substance: BETA CAROTENE
     Indication: Product used for unknown indication
     Dosage: 1 EVERY 1 DAYS?AMOUNT: 450 MILLIGRAM?THERAPY DURATION: 87 DAYS
     Route: 048
  22. BETA CAROTENE [Concomitant]
     Active Substance: BETA CAROTENE
     Indication: Product used for unknown indication
     Dosage: 1 EVERY 1 DAYS?AMOUNT: 462.5 MILLIGRAM?THERAPY DURATION: 91 DAYS
     Route: 048
  23. BETA CAROTENE [Concomitant]
     Active Substance: BETA CAROTENE
     Indication: Product used for unknown indication
     Dosage: 1 EVERY 1 DAYS?AMOUNT: 500 MILLIGRAM?THERAPY DURATION: 589 DAYS
     Route: 048
  24. BETA CAROTENE [Concomitant]
     Active Substance: BETA CAROTENE
     Indication: Product used for unknown indication
     Dosage: 1 EVERY 1 DAYS?AMOUNT: 75 MILLIGRAM?THERAPY DURATION: 67 DAYS
     Route: 048
  25. BETA CAROTENE [Concomitant]
     Active Substance: BETA CAROTENE
     Indication: Product used for unknown indication
     Dosage: 2 EVERY 1 DAYS?AMOUNT: 100 MILLIGRAM?THERAPY DURATION: 66 DAYS
     Route: 048
  26. BETA CAROTENE [Concomitant]
     Active Substance: BETA CAROTENE
     Indication: Product used for unknown indication
     Dosage: THERAPY DURATION: 353 DAYS
     Route: 065
  27. BETA CAROTENE [Concomitant]
     Active Substance: BETA CAROTENE
     Indication: Product used for unknown indication
     Dosage: THERAPY DURATION: 752 DAYS
     Route: 048
  28. BETA CAROTENE [Concomitant]
     Active Substance: BETA CAROTENE
     Indication: Product used for unknown indication
     Dosage: THERAPY DURATION: 962 DAYS
     Route: 048
  29. DEXEDRINE [Concomitant]
     Active Substance: DEXTROAMPHETAMINE SULFATE
     Dosage: 1 EVERY 1 DAYS?AMOUNT: 2.5 MILLIGRAM?NOT SPECIFIED DOSAGE FORM?THERAPY DURATION: 302 DAYS
     Route: 048
  30. LAMICTAL [Concomitant]
     Active Substance: LAMOTRIGINE
     Dosage: 1 EVERY 1 DAYS?AMOUNT: 25 MILLIGRAM?TABLETS DOSAGE FORM?THERAPY DURATION: 68 DAYS
     Route: 048
  31. LAMOTRIGINE [Concomitant]
     Active Substance: LAMOTRIGINE
     Dosage: AMOUNT: 25 MILLIGRAM?UNKNOWN DOSAGE FORM?THERAPY DURATION: 194 DAYS
     Route: 048
  32. LAMOTRIGINE [Concomitant]
     Active Substance: LAMOTRIGINE
     Dosage: 1 EVERY 1 DAYS?AMOUNT: 25 MILLIGRAM?TABLETS DOSAGE FORM?THERAPY DURATION: 102 DAYS
     Route: 048
  33. LAMOTRIGINE [Concomitant]
     Active Substance: LAMOTRIGINE
     Dosage: 1 EVERY 1 DAYS?AMOUNT: 50 MILLIGRAM?UNKNOWN DOSAGE FORM?THERAPY DURATION: 21 DAYS
     Route: 048
  34. LITHIUM [Concomitant]
     Active Substance: LITHIUM
     Dosage: AMOUNT: 600 MILLIGRAM?UNKNOWN DOSAGE FORM?THERAPY DURATION: 293 DAYS
     Route: 065
  35. LITHIUM [Concomitant]
     Active Substance: LITHIUM
     Dosage: 1 EVERY 1 DAYS?AMOUNT: 1050 MILLIGRAM?THERAPY DURATION: 109 DAYS
     Route: 065
  36. LITHIUM [Concomitant]
     Active Substance: LITHIUM
     Dosage: 1 EVERY 1 DAYS?AMOUNT: 450 MILLIGRAM?UNKNOWN DOSAGE FORM?THERAPY DURATION: 293 DAYS
     Route: 065
  37. LITHIUM [Concomitant]
     Active Substance: LITHIUM
     Dosage: 1 EVERY 1 DAYS?AMOUNT: 450 MILLIGRAM?UNKNOWN DOSAGE FORM?THERAPY DURATION: 61 DAYS
     Route: 065
  38. LITHIUM [Concomitant]
     Active Substance: LITHIUM
     Dosage: 1 EVERY 1 DAYS?AMOUNT: 900 MILLIGRAM?UNKNOWN DOSAGE FORM?THERAPY DURATION: 360 DAYS
     Route: 065
  39. RABEPRAZOLE SODIUM [Concomitant]
     Active Substance: RABEPRAZOLE SODIUM
     Dosage: 1 EVERY 1 DAYS?AMOUNT: 20 MILLIGRAM?TABLET (ENTERIC-COATED) DOSAGE FORM?THERAPY DURATION: 35 DAYS
     Route: 048
  40. QUETIAPINE FUMARATE [Concomitant]
     Active Substance: QUETIAPINE FUMARATE
     Dosage: 1 EVERY 1 DAYS?AMOUNT: 100 MILLIGRAM?THERAPY DURATION: 86 DAYS
     Route: 065
  41. QUETIAPINE FUMARATE [Concomitant]
     Active Substance: QUETIAPINE FUMARATE
     Dosage: 1 EVERY 1 DAYS?AMOUNT: 50 MILLIGRAM?UNKNOWN DOSAGE FORM?THERAPY DURATION: 64 DAYS
     Route: 048
  42. QUETIAPINE FUMARATE [Concomitant]
     Active Substance: QUETIAPINE FUMARATE
     Dosage: 1 EVERY 1 DAYS?AMOUNT: 75 MILLIGRAM?UNKNOWN DOSAGE FORM?THERAPY DURATION: 3 DAYS
     Route: 048
  43. RABEPRAZOLE [Concomitant]
     Active Substance: RABEPRAZOLE
     Dosage: 1 EVERY 1 DAYS?AMOUNT: 10 MILLIGRAM?THERAPY DURATION: 29 DAYS
     Route: 048
  44. RANITIDINE [Concomitant]
     Active Substance: RANITIDINE
     Dosage: 1 EVERY 1 DAYS?AMOUNT: 150 MILLIGRAM?UNKNOWN DOSAGE FORM?THERAPY DURATION: 127 DAYS
     Route: 048
  45. RANITIDINE [Concomitant]
     Active Substance: RANITIDINE
     Dosage: 2 EVERY 1 DAYS?AMOUNT: 150 MILLIGRAM?THERAPY DURATION: 107 DAYS
     Route: 048
  46. RANITIDINE [Concomitant]
     Active Substance: RANITIDINE
     Dosage: 2 EVERY 1 DAYS?AMOUNT: 150 MILLIGRAM?UNKNOWN DOSAGE FORM?THERAPY DURATION: 145 DAYS
     Route: 048
  47. THIAMINE HYDROCHLORIDE [Concomitant]
     Active Substance: THIAMINE HYDROCHLORIDE
     Dosage: AMOUNT: 100 MILLIGRAM?THERAPY DURATION: 113 DAYS
     Route: 048
  48. ZOPICLONE [Concomitant]
     Active Substance: ZOPICLONE
     Dosage: AMOUNT: 3.75 MILLIGRAM?TABLETS DOSAGE FORM?THERAPY DURATION: 531 DAYS
     Route: 065
  49. ZUCLOPENTHIXOL [Concomitant]
     Active Substance: ZUCLOPENTHIXOL
     Dosage: AMOUNT: 200 MILLIGRAM?THERAPY DURATION: 66 DAYS
     Route: 030
  50. ZUCLOPENTHIXOL [Concomitant]
     Active Substance: ZUCLOPENTHIXOL
     Dosage: AMOUNT: 50 MILLIGRAM?INJECTION DOSAGE FORM?THERAPY DURATION: 158 DAYS
     Route: 030
  51. ZUCLOPENTHIXOL [Concomitant]
     Active Substance: ZUCLOPENTHIXOL
     Dosage: AMOUNT: 50 MILLIGRAM?INJECTION DOSAGE FORM?THERAPY DURATION: 251 DAYS
     Route: 030
  52. ZUCLOPENTHIXOL [Concomitant]
     Active Substance: ZUCLOPENTHIXOL
     Dosage: 1 EVERY 2 WEEKS?AMOUNT: 50 MILLIGRAM?INJECTION DOSAGE FORM
     Route: 030

REACTIONS (2)
  - Death [Fatal]
  - Myocardial infarction [Fatal]
